FAERS Safety Report 21672471 (Version 1)
Quarter: 2022Q4

REPORT INFORMATION
  Report Type: Spontaneous
  Country: CA (occurrence: CA)
  Receive Date: 20221202
  Receipt Date: 20221202
  Transmission Date: 20230113
  Serious: Yes (Life-Threatening, Hospitalization, Other)
  Sender: FDA-Public Use
  Company Number: CA-AMGEN-CANSP2022203885

PATIENT
  Age: 13 Year
  Sex: Male

DRUGS (2)
  1. FILGRASTIM [Suspect]
     Active Substance: FILGRASTIM
     Indication: Neutropenia
     Dosage: UNK
     Route: 065
  2. FILGRASTIM [Suspect]
     Active Substance: FILGRASTIM
     Indication: Off label use

REACTIONS (10)
  - Oesophageal varices haemorrhage [Unknown]
  - Haematemesis [Unknown]
  - Portal hypertensive gastropathy [Unknown]
  - Aphthous ulcer [Unknown]
  - Non-cirrhotic portal hypertension [Unknown]
  - Hepatic fibrosis [Unknown]
  - Splenomegaly [Unknown]
  - Thrombocytopenia [Unknown]
  - Quality of life decreased [Unknown]
  - Off label use [Unknown]
